FAERS Safety Report 15709511 (Version 4)
Quarter: 2019Q1

REPORT INFORMATION
  Report Type: Report from Study
  Country: None (occurrence: BE)
  Receive Date: 20181211
  Receipt Date: 20190313
  Transmission Date: 20190417
  Serious: Yes (Hospitalization)
  Sender: FDA-Public Use
  Company Number: BE-ABBVIE-18S-013-2585804-00

PATIENT
  Age: 62 Year
  Sex: Male

DRUGS (7)
  1. DUODOPA [Suspect]
     Active Substance: CARBIDOPA\LEVODOPA
     Dosage: MD= 8ML CD= 3.3ML/HR DURING 16HRS  ED= 1.5ML
     Route: 050
     Dates: start: 20181206, end: 20181213
  2. DUODOPA [Suspect]
     Active Substance: CARBIDOPA\LEVODOPA
     Dosage: MD=8ML CD=3.8ML/HR DURING 16HRS ED=1.5ML
     Route: 050
     Dates: start: 20190114
  3. PROLOPA [Concomitant]
     Active Substance: BENSERAZIDE\LEVODOPA
     Indication: PARKINSON^S DISEASE
     Dosage: FORM STRENGTH: 200MG/50MG
     Route: 048
  4. PROLOPA [Concomitant]
     Active Substance: BENSERAZIDE\LEVODOPA
     Dosage: FORM STRENGTH: 200MG/50MG ?6TIME/DAY AS RESCUE MEDICATION
     Route: 065
  5. SERLAIN [Concomitant]
     Active Substance: SERTRALINE HYDROCHLORIDE
     Indication: EMOTIONAL DISORDER
     Route: 065
     Dates: start: 201812
  6. DUODOPA [Suspect]
     Active Substance: CARBIDOPA\LEVODOPA
     Indication: PARKINSON^S DISEASE
     Dosage: MD= 7ML CD= 3ML/HR DURING 16HRS ED= 1.5ML
     Route: 050
     Dates: start: 20181205, end: 20181206
  7. DUODOPA [Suspect]
     Active Substance: CARBIDOPA\LEVODOPA
     Dosage: MD= 8ML CD= 3.5ML/HR DURING 16HRS  ED= 1.5ML
     Route: 050
     Dates: start: 20181213, end: 20190114

REACTIONS (7)
  - Abnormal behaviour [Unknown]
  - Musculoskeletal stiffness [Unknown]
  - Emotional disorder [Unknown]
  - Morose [Unknown]
  - Drug effect incomplete [Unknown]
  - Medical device site dryness [Unknown]
  - Tremor [Unknown]

NARRATIVE: CASE EVENT DATE: 2018
